FAERS Safety Report 21079183 (Version 1)
Quarter: 2022Q3

REPORT INFORMATION
  Report Type: Spontaneous
  Country: US (occurrence: US)
  Receive Date: 20220714
  Receipt Date: 20220714
  Transmission Date: 20221027
  Serious: Yes (Hospitalization)
  Sender: FDA-Public Use
  Company Number: US-BRISTOL-MYERS SQUIBB COMPANY-2022-068501

PATIENT
  Age: 74 Year
  Sex: Female
  Weight: 82.1 kg

DRUGS (1)
  1. POMALYST [Suspect]
     Active Substance: POMALIDOMIDE
     Indication: Plasma cell myeloma
     Dosage: DAY 1-21 Q 28 DAYS
     Route: 048
     Dates: start: 20220516

REACTIONS (1)
  - White blood cell count decreased [Recovered/Resolved]
